FAERS Safety Report 6862020-7 (Version None)
Quarter: 2010Q3

REPORT INFORMATION
  Report Type: 
  Country: None (occurrence: None)
  Receive Date: 20100721
  Receipt Date: 20100714
  Transmission Date: 20110219
  Serious: Yes (Death, Other)
  Sender: FDA-Public Use
  Company Number: PHHY2010JP46453

PATIENT
  Sex: Female
  Weight: 58 kg

DRUGS (8)
  1. CGS 20267 T30748+TAB [Suspect]
     Indication: BREAST CANCER
     Dosage: 2.5 MG/DAY
     Route: 048
     Dates: start: 20080218, end: 20090412
  2. ZOMETA [Suspect]
     Indication: BREAST CANCER
     Dosage: UNK
     Route: 041
     Dates: start: 20060622, end: 20090622
  3. AREDIA [Suspect]
     Indication: BREAST CANCER
     Dosage: UNK
     Route: 041
     Dates: start: 20041115, end: 20060525
  4. PACLITAXEL [Concomitant]
     Indication: BREAST CANCER
     Dosage: UNK
     Route: 042
     Dates: start: 20000713, end: 20080218
  5. ANASTROZOLE [Concomitant]
     Indication: BREAST CANCER
     Dosage: UNK
     Route: 048
     Dates: start: 20040709, end: 20061022
  6. AROMASIN [Concomitant]
     Indication: BREAST CANCER
     Dosage: UNK
     Route: 048
     Dates: start: 20061023, end: 20070114
  7. XELODA [Concomitant]
     Indication: BREAST CANCER
     Dosage: UNK
     Route: 048
     Dates: start: 20070115, end: 20070319
  8. NAVELBINE [Concomitant]
     Indication: BREAST CANCER
     Dosage: 37.5 MG, UNK
     Route: 042
     Dates: start: 20080416, end: 20081126

REACTIONS (2)
  - DEATH [None]
  - MALIGNANT NEOPLASM PROGRESSION [None]
